FAERS Safety Report 8341003 (Version 5)
Quarter: 2014Q2

REPORT INFORMATION
  Report Type: Spontaneous
  Country: US (occurrence: US)
  Receive Date: 20120118
  Receipt Date: 20140402
  Transmission Date: 20141212
  Serious: Yes (Other)
  Sender: FDA-Public Use
  Company Number: US-PFIZER INC-2012008234

PATIENT
  Age: 52 Year
  Sex: Male
  Weight: 86.18 kg

DRUGS (17)
  1. CELEBREX [Suspect]
     Indication: ARTHRALGIA
     Dosage: 200 MG, 2X/DAY
  2. CELEBREX [Suspect]
     Indication: HEADACHE
  3. NEURONTIN [Suspect]
     Indication: NEURALGIA
     Dosage: 600 MG, 2X/DAY
  4. NEURONTIN [Suspect]
     Dosage: 600 MG, 3X/DAY
  5. PROTONIX [Suspect]
     Indication: GASTROOESOPHAGEAL REFLUX DISEASE
     Dosage: 40 MG, 1X/DAY
  6. LYRICA [Suspect]
     Dosage: 75 MG, 2X/DAY
  7. ZETIA [Concomitant]
     Indication: BLOOD CHOLESTEROL INCREASED
     Dosage: UNK
  8. SKELAXIN [Concomitant]
     Indication: MUSCLE SPASMS
     Dosage: 800 MG, 3X/DAY
  9. CYMBALTA [Concomitant]
     Indication: DEPRESSION
     Dosage: 20 MG, UNK
  10. VALIUM [Concomitant]
     Dosage: 5 MG, AS NEEDED
  11. OXYCODONE [Concomitant]
     Dosage: 5/325MG THREE TIMES A DAY
  12. BOTOX [Concomitant]
     Indication: MYALGIA
     Dosage: UNK
  13. FLOMAX [Concomitant]
     Dosage: 4 MG, 1X/DAY
  14. DIAZEPAM [Concomitant]
  15. OXYCODONE/APAP [Concomitant]
  16. METAXALONE [Concomitant]
     Dosage: UNK
  17. ASPIRIN [Concomitant]
     Dosage: UNK

REACTIONS (1)
  - Pain [Unknown]
